FAERS Safety Report 9071367 (Version 1)
Quarter: 2013Q1

REPORT INFORMATION
  Report Type: Spontaneous
  Country: PH (occurrence: PH)
  Receive Date: 20130129
  Receipt Date: 20130129
  Transmission Date: 20140127
  Serious: Yes (Life-Threatening, Hospitalization)
  Sender: FDA-Public Use
  Company Number: PH-B.I. PHARMACEUTICALS,INC./RIDGEFIELD-2013-CS-00100RP

PATIENT
  Age: 78 Year
  Sex: Male

DRUGS (4)
  1. PRADAXA [Suspect]
     Indication: CEREBROVASCULAR ACCIDENT PROPHYLAXIS
     Dosage: 300 MG
     Route: 048
     Dates: start: 201210, end: 201212
  2. PRADAXA [Suspect]
     Indication: ATRIAL FIBRILLATION
     Dosage: 220 MG
     Route: 048
     Dates: start: 201212, end: 20130116
  3. TWYNSTA [Concomitant]
     Indication: HYPERTENSION
     Dosage: 40/5MG
  4. METFORMIN [Concomitant]
     Indication: DIABETES MELLITUS

REACTIONS (2)
  - Ischaemic stroke [Not Recovered/Not Resolved]
  - Gastrointestinal tract irritation [Recovered/Resolved]
